FAERS Safety Report 11285094 (Version 3)
Quarter: 2015Q3

REPORT INFORMATION
  Report Type: Report from Study
  Country: US (occurrence: US)
  Receive Date: 20150720
  Receipt Date: 20150922
  Transmission Date: 20151125
  Serious: Yes (Hospitalization, Other)
  Sender: FDA-Public Use
  Company Number: US-GILEAD-2015-0163688

PATIENT
  Age: 43 Year
  Sex: Female

DRUGS (22)
  1. LEVAQUIN [Concomitant]
     Active Substance: LEVOFLOXACIN
  2. IRON [Concomitant]
     Active Substance: IRON
  3. NORCO [Concomitant]
     Active Substance: ACETAMINOPHEN\HYDROCODONE BITARTRATE
  4. FLONASE [Concomitant]
     Active Substance: FLUTICASONE PROPIONATE
  5. AMBRISENTAN [Suspect]
     Active Substance: AMBRISENTAN
     Indication: PULMONARY EMBOLISM
  6. REVATIO [Suspect]
     Active Substance: SILDENAFIL CITRATE
     Indication: PRODUCT USED FOR UNKNOWN INDICATION
     Route: 065
  7. LIDODERM [Concomitant]
     Active Substance: LIDOCAINE
  8. COUMADIN [Concomitant]
     Active Substance: WARFARIN SODIUM
  9. EFFEXOR [Concomitant]
     Active Substance: VENLAFAXINE HYDROCHLORIDE
  10. KEPPRA [Concomitant]
     Active Substance: LEVETIRACETAM
  11. NOVOLIN R [Concomitant]
     Active Substance: INSULIN HUMAN
  12. LASIX [Concomitant]
     Active Substance: FUROSEMIDE
  13. SEROQUEL [Concomitant]
     Active Substance: QUETIAPINE FUMARATE
  14. HYDROXYZINE [Concomitant]
     Active Substance: HYDROXYZINE\HYDROXYZINE HYDROCHLORIDE
  15. NEURONTIN [Concomitant]
     Active Substance: GABAPENTIN
  16. AMBRISENTAN [Suspect]
     Active Substance: AMBRISENTAN
     Indication: PULMONARY HYPERTENSION
     Dosage: 5 MG, QD
     Route: 065
     Dates: start: 20150424
  17. ZOCOR [Concomitant]
     Active Substance: SIMVASTATIN
  18. SYNTHROID [Concomitant]
     Active Substance: LEVOTHYROXINE SODIUM
  19. SINGULAIR [Concomitant]
     Active Substance: MONTELUKAST SODIUM
  20. XYLOCAINE [Concomitant]
     Active Substance: LIDOCAINE HYDROCHLORIDE
  21. ADVAIR HFA [Concomitant]
     Active Substance: FLUTICASONE PROPIONATE\SALMETEROL XINAFOATE
  22. POTASSIUM [Concomitant]
     Active Substance: POTASSIUM

REACTIONS (2)
  - Enterococcal infection [Not Recovered/Not Resolved]
  - Pneumonia [Unknown]
